FAERS Safety Report 5643029-8 (Version None)
Quarter: 2008Q1

REPORT INFORMATION
  Report Type: 
  Country: None (occurrence: None)
  Receive Date: 20080227
  Receipt Date: 20080227
  Transmission Date: 20080703
  Serious: Yes (Hospitalization)
  Sender: FDA-Public Use
  Company Number: None

PATIENT
  Age: 76 Year
  Sex: Male

DRUGS (1)
  1. FENTANYL [Suspect]
     Indication: PAIN
     Dosage: 25MCG OTHER TOP
     Route: 061
     Dates: start: 20071128, end: 20071130

REACTIONS (2)
  - CONFUSIONAL STATE [None]
  - RESPIRATORY DEPRESSION [None]
